FAERS Safety Report 14982489 (Version 1)
Quarter: 2018Q2

REPORT INFORMATION
  Report Type: Spontaneous
  Country: US (occurrence: US)
  Receive Date: 20180517
  Receipt Date: 20180517
  Transmission Date: 20180711
  Serious: Yes (Other)
  Sender: FDA-Public Use
  Company Number: None

PATIENT
  Age: 46 Year
  Sex: Female
  Weight: 58.5 kg

DRUGS (1)
  1. KENALOG [Suspect]
     Active Substance: TRIAMCINOLONE ACETONIDE
     Indication: PAIN
     Dates: start: 20180417, end: 20180417

REACTIONS (4)
  - Throat tightness [None]
  - Hypoaesthesia oral [None]
  - Hypersensitivity [None]
  - Uterine haemorrhage [None]

NARRATIVE: CASE EVENT DATE: 20180417
